FAERS Safety Report 5919892-X (Version None)
Quarter: 2008Q3

REPORT INFORMATION
  Report Type: 
  Country: None (occurrence: None)
  Receive Date: 20080909
  Receipt Date: 20070830
  Transmission Date: 20090109
  Serious: Yes (Hospitalization)
  Sender: FDA-Public Use
  Company Number: 163-20785-07081920 (0)

PATIENT
  Age: 61 Year
  Sex: Male
  Weight: 101.2 kg

DRUGS (21)
  1. THALOMID [Suspect]
     Indication: MULTIPLE MYELOMA
     Dosage: 200MG - 100MG, DAILY, ORAL
     Route: 048
     Dates: start: 20060513, end: 20061012
  2. DEXAMETHASONE TAB [Suspect]
     Indication: MULTIPLE MYELOMA
     Dosage: 40 MG
     Dates: start: 20060513, end: 20061122
  3. CISPLATIN [Suspect]
     Indication: MULTIPLE MYELOMA
     Dosage: 10 MG/M2
     Dates: start: 20060513, end: 20060622
  4. ADRIAMYCIN PFS [Suspect]
     Indication: MULTIPLE MYELOMA
     Dosage: 10 MG/M2
     Dates: start: 20060513, end: 20060622
  5. CYCLOPHOSPHAMIDE [Suspect]
     Indication: MULTIPLE MYELOMA
     Dosage: 400 MG/M2
     Dates: start: 20060513, end: 20060622
  6. ETOPOSIDE [Suspect]
     Indication: MULTIPLE MYELOMA
     Dosage: 40 MG/M2
     Dates: start: 20060513, end: 20060622
  7. MELPHALAN (MELPHALAN) [Suspect]
     Indication: MULTIPLE MYELOMA
     Dosage: 200 MG/M2
     Dates: start: 20060725, end: 20061119
  8. ACYCLOVIR (ACICLOVIR) (400 MILLIGRAM, TABLETS) [Concomitant]
  9. LOTREL (LOTREL) (CAPSULES) [Concomitant]
  10. FOLIC ACID (FOLIC ACID) (TABLETS) [Concomitant]
  11. PRILOSEC (OMEPRAZOLE) (20 MILLIGRAM, TABLETS) [Concomitant]
  12. TOPROL XL (METOPROLOL SUCCINATE) (100 MILLIGRAM, TABLETS) [Concomitant]
  13. NEUTRA-PHOS-K (NEUTRA-PHOS-K) [Concomitant]
  14. LEVAQUIN (LEVOFLOXACIN) (500 MILLIGRAM, TABLETS) [Concomitant]
  15. FLUCONAZOLE (FLUCONAZOLE) (TABLETS) [Concomitant]
  16. NEUPOGEN (FILGRASTIM) (SOLUTION) [Concomitant]
  17. ARANESP [Concomitant]
  18. BACLOFEN (BACLOFEN) (10 MILLIGRAM, TABLETS) [Concomitant]
  19. TOBRAMYCIN SULFATE (TOBRAMYCIN SULFATE) (SOLUTION) [Concomitant]
  20. PRIMAXIN (PRIMAXIN) (SOLUTION) [Concomitant]
  21. VELCADE [Suspect]
     Indication: MULTIPLE MYELOMA
     Dosage: 1 MG/M2
     Dates: start: 20060510, end: 20060510

REACTIONS (1)
  - ATRIAL FLUTTER [None]
